FAERS Safety Report 8205341-8 (Version None)
Quarter: 2012Q1

REPORT INFORMATION
  Report Type: 
  Country: None (occurrence: None)
  Receive Date: 20120313
  Receipt Date: 20120302
  Transmission Date: 20120608
  Serious: No
  Sender: FDA-Public Use
  Company Number: CA-JNJFOC-20120301774

PATIENT
  Sex: Female
  Weight: 83 kg

DRUGS (1)
  1. REMICADE [Suspect]
     Indication: TAKAYASU'S ARTERITIS
     Route: 042
     Dates: start: 20111209

REACTIONS (4)
  - FUNGAL INFECTION [None]
  - MYALGIA [None]
  - FATIGUE [None]
  - ARTHRALGIA [None]
